FAERS Safety Report 6706489-7 (Version None)
Quarter: 2010Q2

REPORT INFORMATION
  Report Type: 
  Country: None (occurrence: None)
  Receive Date: 20100503
  Receipt Date: 20100419
  Transmission Date: 20101027
  Serious: Yes (Hospitalization)
  Sender: FDA-Public Use
  Company Number: US-SANOFI-AVENTIS-A03200904460

PATIENT
  Sex: Female

DRUGS (6)
  1. DRONEDARONE HCL [Suspect]
     Dosage: UNIT DOSE: 400 MG
     Route: 048
  2. BETA BLOCKING AGENTS [Concomitant]
  3. LEVOXYL [Concomitant]
  4. NEBIVOLOL [Concomitant]
  5. SERUMLIPIDREDUCING AGENTS [Concomitant]
  6. LASIX [Concomitant]

REACTIONS (3)
  - CARDIAC FAILURE [None]
  - CEREBROVASCULAR ACCIDENT [None]
  - DYSPNOEA [None]
